FAERS Safety Report 7621576-7 (Version None)
Quarter: 2011Q3

REPORT INFORMATION
  Report Type: 
  Country: None (occurrence: None)
  Receive Date: 20110719
  Receipt Date: 20110714
  Transmission Date: 20111222
  Serious: Yes (Death, Other)
  Sender: FDA-Public Use
  Company Number: PHEH2006US15260

PATIENT
  Sex: Female
  Weight: 67 kg

DRUGS (46)
  1. EXEMESTANE [Concomitant]
     Dosage: 25 MG, QD
     Dates: start: 20050101
  2. FASLODEX [Concomitant]
     Dosage: 250 MG, QMO
     Route: 030
     Dates: start: 20060425, end: 20060901
  3. DECADRON [Concomitant]
     Indication: RADIOTHERAPY
     Route: 048
     Dates: start: 20061001
  4. VITAMIN B 1-6-12 [Concomitant]
     Dosage: 100 MG, BID
  5. PENICILLIN VK [Concomitant]
     Dosage: 250 MG, UNK
  6. LEVAQUIN [Concomitant]
     Dosage: 500 MG, UNK
  7. MORPHINE [Concomitant]
  8. AROMASIN [Concomitant]
     Dosage: UNK
     Dates: start: 20050321, end: 20050718
  9. CHEMOTHERAPEUTICS NOS [Concomitant]
     Route: 042
  10. GABAPENTIN [Concomitant]
  11. ZOMETA [Suspect]
     Indication: METASTASES TO BONE
     Dosage: 4 MG, UNK
     Dates: start: 20020601, end: 20060301
  12. PREVACID [Concomitant]
     Dosage: 30 MG, BID
  13. LEXAPRO [Concomitant]
     Indication: DEPRESSION
     Dosage: 10 MG, QD
     Dates: start: 20071101
  14. VITAMIN TAB [Concomitant]
     Dosage: 1 DF, UNK
  15. FOSAMAX [Concomitant]
     Indication: OSTEOPOROSIS
     Dates: start: 20010101, end: 20010101
  16. RADIATION [Concomitant]
  17. PHENERGAN HCL [Concomitant]
  18. PROMETHAZINE [Concomitant]
     Indication: NAUSEA
  19. NABUMETONE [Concomitant]
     Dosage: 150 MG, UNK
  20. COMFORT GEL LIQUID [Concomitant]
  21. LOVENOX [Concomitant]
  22. AREDIA [Suspect]
     Dosage: 90 MG, QMO
     Dates: start: 20011206
  23. TAMOXIFEN CITRATE [Concomitant]
  24. CALCIUM CARBONATE [Concomitant]
     Dosage: 2 DF, UNK
  25. ZOFRAN [Concomitant]
     Dates: start: 20010101
  26. STEROIDS NOS [Concomitant]
     Route: 042
     Dates: start: 20061001, end: 20061001
  27. XELODA [Concomitant]
     Dosage: 1500 MG, BID
  28. GEMZAR [Concomitant]
  29. AMBIEN [Concomitant]
     Dosage: 10 MG, UNK
  30. MEGESTROL ACETATE [Concomitant]
     Dosage: 40 MG, UNK
  31. ALPRAZOLAM [Concomitant]
  32. ZOLADEX [Concomitant]
     Dates: start: 20020101, end: 20040101
  33. WARFARIN SODIUM [Concomitant]
     Dosage: 2 MG, UNK
  34. PRILOCAINE HYDROCHLORIDE [Concomitant]
  35. CLINDAMYCIN [Concomitant]
     Dosage: 150 MG, UNK
  36. ASPIRIN [Concomitant]
  37. IBUPROFEN [Concomitant]
  38. ARIMIDEX [Concomitant]
     Dates: start: 20010101, end: 20050321
  39. ARANESP [Concomitant]
     Indication: ANAEMIA
     Dosage: 300 UG, UNK
  40. HYDROCODONE [Concomitant]
  41. LUPRON [Concomitant]
  42. ROMOZIN ^GLAXO WELLCOME^ [Concomitant]
     Dates: end: 20060328
  43. COMPAZINE [Concomitant]
  44. AVASTIN [Concomitant]
     Dosage: 5 MG/KG, UNK
  45. OMEPRAZOLE [Concomitant]
     Dosage: 40 MG, QD
  46. LIDOCAINE [Concomitant]

REACTIONS (42)
  - TOOTH DISORDER [None]
  - DECREASED INTEREST [None]
  - CARDIAC MURMUR [None]
  - COMPRESSION FRACTURE [None]
  - NEUTROPHIL COUNT INCREASED [None]
  - ANAEMIA [None]
  - BLADDER DYSFUNCTION [None]
  - GENERAL PHYSICAL HEALTH DETERIORATION [None]
  - PAIN [None]
  - HOT FLUSH [None]
  - THROMBOSIS [None]
  - CEREBRAL CYST [None]
  - TOOTH FRACTURE [None]
  - ARTHRALGIA [None]
  - CAROTID BRUIT [None]
  - LUNG DISORDER [None]
  - DEATH [None]
  - ANXIETY [None]
  - DEPRESSION [None]
  - PLATELET COUNT INCREASED [None]
  - NEOPLASM MALIGNANT [None]
  - METASTASES TO CENTRAL NERVOUS SYSTEM [None]
  - PAIN IN EXTREMITY [None]
  - OVARIAN CYST [None]
  - MUSCULAR WEAKNESS [None]
  - FUNCTIONAL GASTROINTESTINAL DISORDER [None]
  - OSTEONECROSIS OF JAW [None]
  - OSTEOMYELITIS [None]
  - AGEUSIA [None]
  - BREAST CANCER METASTATIC [None]
  - METASTASES TO BONE [None]
  - NEUROPATHY PERIPHERAL [None]
  - ABDOMINAL PAIN [None]
  - BLOOD ALKALINE PHOSPHATASE INCREASED [None]
  - BONE LESION [None]
  - MENOPAUSE [None]
  - SPONDYLOLISTHESIS [None]
  - SINUSITIS [None]
  - INTERVERTEBRAL DISC PROTRUSION [None]
  - INTERVERTEBRAL DISC DEGENERATION [None]
  - OEDEMA PERIPHERAL [None]
  - NECK PAIN [None]
